FAERS Safety Report 7902377-9 (Version None)
Quarter: 2011Q4

REPORT INFORMATION
  Report Type: 
  Country: None (occurrence: None)
  Receive Date: 20111108
  Receipt Date: 20111026
  Transmission Date: 20120403
  Serious: Yes (Hospitalization, Other)
  Sender: FDA-Public Use
  Company Number: FR-PFIZER INC-2011271501

PATIENT
  Age: 26 Year
  Sex: Female

DRUGS (4)
  1. PROPRANOLOL [Suspect]
     Indication: TACHYCARDIA
     Dosage: 40 MG, 3X/DAY
     Route: 048
     Dates: start: 20020101, end: 20101108
  2. XANAX [Concomitant]
     Indication: ANXIETY
     Dosage: 7.5 MG, DAILY
     Route: 048
  3. PROPRANOLOL [Suspect]
     Dosage: 40 MG, 3X/DAY
     Route: 048
     Dates: start: 20101201
  4. NEO-MERCAZOLE TAB [Concomitant]
     Indication: HYPERTHYROIDISM
     Dosage: 10 MG, DAILY
     Route: 048
     Dates: start: 20090101, end: 20101211

REACTIONS (2)
  - MALAISE [None]
  - RAYNAUD'S PHENOMENON [None]
